FAERS Safety Report 6494586-3 (Version None)
Quarter: 2009Q4

REPORT INFORMATION
  Report Type: 
  Country: None (occurrence: None)
  Receive Date: 20091214
  Receipt Date: 20090317
  Transmission Date: 20100525
  Serious: No
  Sender: FDA-Public Use
  Company Number: US-BRISTOL-MYERS SQUIBB COMPANY-14532527

PATIENT
  Age: 3 Decade
  Sex: Female

DRUGS (2)
  1. ABILIFY [Suspect]
     Indication: MOOD SWINGS
     Dates: start: 20090219
  2. ABILIFY [Suspect]
     Indication: BIPOLAR DISORDER
     Dates: start: 20090219

REACTIONS (2)
  - CONTUSION [None]
  - EPISTAXIS [None]
